FAERS Safety Report 10785613 (Version 2)
Quarter: 2015Q1

REPORT INFORMATION
  Report Type: Spontaneous
  Country: CH (occurrence: CH)
  Receive Date: 20150211
  Receipt Date: 20150223
  Transmission Date: 20150721
  Serious: Yes (Other)
  Sender: FDA-Public Use
  Company Number: CH-ABBVIE-15P-151-1345470-00

PATIENT
  Age: 70 Year
  Sex: Male

DRUGS (2)
  1. AZILECT [Concomitant]
     Active Substance: RASAGILINE MESYLATE
     Indication: PARKINSON^S DISEASE
     Route: 048
     Dates: start: 201305
  2. DUODOPA [Suspect]
     Active Substance: CARBIDOPA\LEVODOPA
     Indication: PARKINSON^S DISEASE
     Dosage: 4.0ML/H FROM 6AM TO 6PM
     Route: 050
     Dates: start: 201303

REACTIONS (1)
  - Breast cancer male [Unknown]

NARRATIVE: CASE EVENT DATE: 201402
